FAERS Safety Report 12669490 (Version 2)
Quarter: 2016Q3

REPORT INFORMATION
  Report Type: Spontaneous
  Country: US (occurrence: US)
  Receive Date: 20160819
  Receipt Date: 20160912
  Transmission Date: 20161109
  Serious: Yes (Other)
  Sender: FDA-Public Use
  Company Number: US-JNJFOC-20160813265

PATIENT

DRUGS (2)
  1. SIMEPREVIR [Suspect]
     Active Substance: SIMEPREVIR
     Indication: HEPATITIS C
     Dosage: FOR 12 WEEKS IN NON CIRRHOTIC PATIENT AND 24 WEEKS IN CIRRHOTIC. 53.62% COMPLETED THE TREATMENT
     Route: 065
  2. SOFOSBUVIR [Suspect]
     Active Substance: SOFOSBUVIR
     Indication: HEPATITIS C
     Dosage: FOR 12 WEEKS IN NON CIRRHOTIC PATIENT AND 24 WEEKS IN CIRRHOTIC. 53.62% COMPLETED THE TREATMENT
     Route: 065

REACTIONS (4)
  - Treatment noncompliance [Unknown]
  - Remission not achieved [Unknown]
  - Off label use [Unknown]
  - Product use issue [Unknown]
